FAERS Safety Report 7818201-9 (Version None)
Quarter: 2011Q4

REPORT INFORMATION
  Report Type: 
  Country: None (occurrence: None)
  Receive Date: 20111017
  Receipt Date: 20111012
  Transmission Date: 20120403
  Serious: Yes (Death, Other)
  Sender: FDA-Public Use
  Company Number: PHHY2011JP90712

PATIENT

DRUGS (4)
  1. CYCLOSPORINE [Suspect]
     Indication: STEM CELL TRANSPLANT
     Dosage: UNK UKN, UNK
  2. MYCOPHENOLATE MOFETIL [Suspect]
     Dosage: UNK UKN, UNK
  3. BASILIXIMAB [Suspect]
     Dosage: UNK UKN, UNK
  4. PREDNISOLONE [Suspect]

REACTIONS (6)
  - VIRAL HAEMORRHAGIC CYSTITIS [None]
  - ADENOVIRUS INFECTION [None]
  - CYTOMEGALOVIRUS INFECTION [None]
  - HAEMATURIA [None]
  - GRAFT VERSUS HOST DISEASE [None]
  - INFECTION [None]
